FAERS Safety Report 9130023 (Version 2)
Quarter: 2013Q2

REPORT INFORMATION
  Report Type: Spontaneous
  Country: GB (occurrence: GB)
  Receive Date: 20130228
  Receipt Date: 20130410
  Transmission Date: 20140414
  Serious: Yes (Other)
  Sender: FDA-Public Use
  Company Number: GB-009507513-1302GBR011310

PATIENT
  Age: 78 Year
  Sex: Female

DRUGS (6)
  1. COZAAR 12,5 MG [Suspect]
     Indication: HYPERTENSION
     Dosage: 50 MG, UNK
     Route: 048
     Dates: start: 20130123, end: 20130124
  2. ASPIRIN [Concomitant]
     Dosage: 75 MG, UNK
  3. BENDROFLUMETHIAZIDE [Concomitant]
     Dosage: 2 MG, UNK
  4. LEVOTHYROXINE SODIUM [Concomitant]
     Dosage: 100 MICROGRAM, UNK
  5. PERINDOPRIL [Concomitant]
     Dosage: 4 MG, UNK
  6. SIMVASTATIN [Concomitant]
     Dosage: 20 MG, UNK

REACTIONS (11)
  - Dysstasia [Not Recovered/Not Resolved]
  - Dizziness [Not Recovered/Not Resolved]
  - Drug prescribing error [Unknown]
  - Malaise [Not Recovered/Not Resolved]
  - Hypertension [Not Recovered/Not Resolved]
  - Epistaxis [Not Recovered/Not Resolved]
  - Palpitations [Not Recovered/Not Resolved]
  - Chills [Not Recovered/Not Resolved]
  - Chills [Not Recovered/Not Resolved]
  - Dyspnoea [Not Recovered/Not Resolved]
  - Asthenia [Not Recovered/Not Resolved]
